FAERS Safety Report 8017359-9 (Version None)
Quarter: 2012Q1

REPORT INFORMATION
  Report Type: 
  Country: None (occurrence: None)
  Receive Date: 20120102
  Receipt Date: 20110519
  Transmission Date: 20120608
  Serious: Yes (Death, Other)
  Sender: FDA-Public Use
  Company Number: US-ROCHE-1026259

PATIENT
  Sex: Female

DRUGS (2)
  1. PEGINTERFERON ALFA-2A [Suspect]
     Indication: HEPATITIS C
     Dates: start: 20110419, end: 20111108
  2. COPEGUS [Suspect]
     Indication: HEPATITIS C
     Dates: start: 20110419, end: 20111108

REACTIONS (10)
  - INSOMNIA [None]
  - COUGH [None]
  - DEATH [None]
  - FATIGUE [None]
  - DYSPHONIA [None]
  - ASTHENIA [None]
  - PYREXIA [None]
  - DECREASED APPETITE [None]
  - WHITE BLOOD CELL COUNT DECREASED [None]
  - OROPHARYNGEAL PAIN [None]
